FAERS Safety Report 13978157 (Version 3)
Quarter: 2017Q4

REPORT INFORMATION
  Report Type: Report from Study
  Country: US (occurrence: US)
  Receive Date: 20170915
  Receipt Date: 20171110
  Transmission Date: 20180321
  Serious: Yes (Other)
  Sender: FDA-Public Use
  Company Number: US-ACTELION-A-US2016-136531

PATIENT
  Age: 52 Year
  Sex: Female
  Weight: 65.76 kg

DRUGS (13)
  1. RIOCIGUAT [Concomitant]
     Active Substance: RIOCIGUAT
  2. TYVASO [Suspect]
     Active Substance: TREPROSTINIL
     Indication: PRODUCT USED FOR UNKNOWN INDICATION
     Dosage: 8 BREATHS, 3-4 TIMES A DAY
     Route: 065
  3. TYVASO [Suspect]
     Active Substance: TREPROSTINIL
     Dosage: 4 SESSIONS PER DAY
     Route: 065
  4. ADEMPAS [Concomitant]
     Active Substance: RIOCIGUAT
  5. FUROSEMIDE. [Concomitant]
     Active Substance: FUROSEMIDE
  6. OPSUMIT [Suspect]
     Active Substance: MACITENTAN
     Dosage: 10 MG, QD
     Route: 048
  7. OPSUMIT [Suspect]
     Active Substance: MACITENTAN
     Indication: PULMONARY HYPERTENSION
     Dosage: 10 MG, QD
     Route: 048
     Dates: start: 20140624
  8. TYVASO [Suspect]
     Active Substance: TREPROSTINIL
     Dosage: 3 SESSIONS PER DAY
     Route: 065
  9. WARFARIN [Concomitant]
     Active Substance: WARFARIN
     Dosage: UNK
  10. OMEPRAZOLE. [Concomitant]
     Active Substance: OMEPRAZOLE
  11. TYVASO [Suspect]
     Active Substance: TREPROSTINIL
     Dosage: 1 BREATH 4 TIMES A DAY
     Route: 065
  12. SPIRONOLACTONE. [Concomitant]
     Active Substance: SPIRONOLACTONE
  13. RANITIDINE. [Concomitant]
     Active Substance: RANITIDINE
     Dosage: 1500 MG, BID

REACTIONS (31)
  - Internal haemorrhage [Unknown]
  - Fatigue [Unknown]
  - Insomnia [Unknown]
  - Anaemia [Unknown]
  - Skin lesion [Recovering/Resolving]
  - Constipation [Unknown]
  - Abdominal pain upper [Recovered/Resolved]
  - Epistaxis [Unknown]
  - Diarrhoea [Recovered/Resolved]
  - Dyspepsia [Unknown]
  - Dyspnoea [Unknown]
  - Malaise [Unknown]
  - Gastric ulcer [Recovered/Resolved]
  - Musculoskeletal pain [Recovered/Resolved]
  - Throat irritation [Unknown]
  - Headache [Unknown]
  - Hypotension [Unknown]
  - Dizziness [Unknown]
  - Incisional drainage [Recovering/Resolving]
  - Cough [Unknown]
  - Oxygen saturation decreased [Unknown]
  - Oropharyngeal pain [Unknown]
  - Blood count abnormal [Unknown]
  - Palpitations [Unknown]
  - Heart rate increased [Unknown]
  - Oedema [Unknown]
  - Pruritus [Unknown]
  - Weight decreased [Unknown]
  - Nausea [Recovered/Resolved]
  - Gastritis viral [Unknown]
  - Large intestinal polypectomy [Unknown]

NARRATIVE: CASE EVENT DATE: 20170327
